FAERS Safety Report 16942525 (Version 1)
Quarter: 2019Q4

REPORT INFORMATION
  Report Type: Spontaneous
  Country: GR (occurrence: GR)
  Receive Date: 20191021
  Receipt Date: 20191021
  Transmission Date: 20200122
  Serious: Yes (Death, Hospitalization, Other)
  Sender: FDA-Public Use
  Company Number: GR-ASTRAZENECA-2019SF49048

PATIENT
  Age: 73 Year
  Sex: Female

DRUGS (3)
  1. TICAGRELOR. [Suspect]
     Active Substance: TICAGRELOR
     Indication: ACUTE MYOCARDIAL INFARCTION
     Dosage: 180.0MG UNKNOWN
     Route: 048
  2. HEPARIN [Suspect]
     Active Substance: HEPARIN SODIUM
     Dosage: 8000.0IU UNKNOWN
     Route: 065
  3. MIDAZOLAME [Concomitant]
     Dosage: 1CC
     Route: 065

REACTIONS (1)
  - Subarachnoid haemorrhage [Fatal]
